FAERS Safety Report 7720188-4 (Version None)
Quarter: 2011Q3

REPORT INFORMATION
  Report Type: 
  Country: None (occurrence: None)
  Receive Date: 20110826
  Receipt Date: 20110826
  Transmission Date: 20111222
  Serious: No
  Sender: FDA-Public Use
  Company Number: None

PATIENT
  Sex: Female
  Weight: 68.0396 kg

DRUGS (1)
  1. YAZ [Suspect]

REACTIONS (4)
  - MOOD SWINGS [None]
  - METRORRHAGIA [None]
  - PRODUCT SUBSTITUTION ISSUE [None]
  - MUSCLE SPASMS [None]
